FAERS Safety Report 11441283 (Version 1)
Quarter: 2015Q3

REPORT INFORMATION
  Report Type: Spontaneous
  Country: US (occurrence: US)
  Receive Date: 20150821
  Receipt Date: 20150821
  Transmission Date: 20151125
  Serious: No
  Sender: FDA-Public Use
  Company Number: US-ELI_LILLY_AND_COMPANY-US200710007185

PATIENT
  Sex: Female
  Weight: 78.01 kg

DRUGS (9)
  1. DIOVAN [Concomitant]
     Active Substance: VALSARTAN
  2. LEVAQUIN [Concomitant]
     Active Substance: LEVOFLOXACIN
     Indication: DEPRESSION
  3. NASACORT [Concomitant]
     Active Substance: TRIAMCINOLONE ACETONIDE
  4. CYMBALTA [Suspect]
     Active Substance: DULOXETINE HYDROCHLORIDE
     Indication: DEPRESSION
     Dosage: 30 MG, DAILY (1/D)
     Route: 048
     Dates: start: 20061214
  5. AUGMENTIN [Concomitant]
     Active Substance: AMOXICILLIN\CLAVULANATE POTASSIUM
  6. ALPRAZOLAM. [Concomitant]
     Active Substance: ALPRAZOLAM
  7. VESICARE [Concomitant]
     Active Substance: SOLIFENACIN SUCCINATE
     Indication: MICTURITION URGENCY
  8. CYMBALTA [Suspect]
     Active Substance: DULOXETINE HYDROCHLORIDE
     Dosage: 30 MG, 2/D
     Route: 048
     Dates: end: 20071008
  9. ROCEPHIN IM. [Concomitant]

REACTIONS (7)
  - Blood pressure increased [Not Recovered/Not Resolved]
  - Feeling abnormal [Unknown]
  - Appetite disorder [Unknown]
  - Blood cholesterol increased [Not Recovered/Not Resolved]
  - Weight increased [Recovering/Resolving]
  - Low density lipoprotein increased [Not Recovered/Not Resolved]
  - Increased appetite [Unknown]
